FAERS Safety Report 15467187 (Version 2)
Quarter: 2020Q2

REPORT INFORMATION
  Report Type: Spontaneous
  Country: US (occurrence: US)
  Receive Date: 20181005
  Receipt Date: 20200625
  Transmission Date: 20200713
  Serious: Yes (Hospitalization)
  Sender: FDA-Public Use
  Company Number: US-ROCHE-2192820

PATIENT
  Sex: Female

DRUGS (1)
  1. OCREVUS [Suspect]
     Active Substance: OCRELIZUMAB
     Indication: RELAPSING MULTIPLE SCLEROSIS
     Dosage: SECOND AND THIRD DOSE IN AUG/2018
     Route: 065

REACTIONS (3)
  - Lymphopenia [Recovered/Resolved]
  - Urinary tract infection [Unknown]
  - Neutropenia [Recovered/Resolved]
